FAERS Safety Report 4291371-8 (Version None)
Quarter: 2004Q1

REPORT INFORMATION
  Report Type: 
  Country: None (occurrence: None)
  Receive Date: 20040126
  Receipt Date: 20031029
  Transmission Date: 20041129
  Serious: No
  Sender: FDA-Public Use
  Company Number: JUSA031051160

PATIENT
  Age: 55 Year
  Sex: Female

DRUGS (1)
  1. FORTEO [Suspect]
     Dates: start: 20031001

REACTIONS (6)
  - ASTHENIA [None]
  - DIZZINESS [None]
  - INJECTION SITE ERYTHEMA [None]
  - MALAISE [None]
  - MUSCLE CRAMP [None]
  - NAUSEA [None]
